FAERS Safety Report 8920924 (Version 1)
Quarter: 2012Q4

REPORT INFORMATION
  Report Type: 
  Country: JP (occurrence: JP)
  Receive Date: 20121121
  Receipt Date: 20121121
  Transmission Date: 20130627
  Serious: Yes (Hospitalization)
  Sender: FDA-Public Use
  Company Number: JP-GLAXOSMITHKLINE-B0843704A

PATIENT
  Age: 59 None
  Sex: Female

DRUGS (9)
  1. LAMICTAL [Suspect]
     Indication: BIPOLAR I DISORDER
     Dosage: 25MG Per day
     Route: 048
     Dates: start: 20120918, end: 20121031
  2. CRAVIT [Concomitant]
     Indication: TONSILLITIS
     Route: 065
     Dates: start: 20121010, end: 201210
  3. HYSERENIN [Concomitant]
     Indication: BIPOLAR I DISORDER
     Dosage: 200MG Twice per day
     Route: 048
     Dates: start: 20050524
  4. SODIUM PICOSULFATE [Concomitant]
     Indication: CONSTIPATION
     Dosage: 2.5MG Twice per day
     Route: 048
     Dates: start: 20060719
  5. SENNA [Concomitant]
     Indication: CONSTIPATION
     Dosage: 24MG Per day
     Route: 048
     Dates: start: 20060719
  6. MINZAIN [Concomitant]
     Indication: INSOMNIA
     Dosage: .25MG Per day
     Route: 048
     Dates: start: 20090212
  7. AMOXAN [Concomitant]
     Indication: DEPRESSED MOOD
     Route: 048
  8. AMOXAN [Concomitant]
     Indication: DEPRESSED MOOD
     Route: 048
     Dates: start: 20120820, end: 20120917
  9. AMOXAN [Concomitant]
     Indication: DEPRESSED MOOD
     Route: 048
     Dates: start: 20120918, end: 20120926

REACTIONS (5)
  - Drug eruption [Unknown]
  - Logorrhoea [Unknown]
  - Tonsillitis [Unknown]
  - Urticaria [Unknown]
  - Vomiting [Unknown]
